FAERS Safety Report 6018968-9 (Version None)
Quarter: 2008Q4

REPORT INFORMATION
  Report Type: 
  Country: None (occurrence: None)
  Receive Date: 20081221
  Receipt Date: 20081221
  Transmission Date: 20090506
  Serious: Yes (Other)
  Sender: FDA-Public Use
  Company Number: None

PATIENT
  Age: 62 Year
  Sex: Female

DRUGS (2)
  1. CYMBALTA [Suspect]
     Indication: BACK PAIN
     Dosage: ONE DAILY AT NIGHT
     Dates: start: 20081201, end: 20081212
  2. CYMBALTA [Suspect]
     Indication: FIBROMYALGIA
     Dosage: ONE DAILY AT NIGHT
     Dates: start: 20081201, end: 20081212

REACTIONS (5)
  - PRURITUS [None]
  - RASH [None]
  - SKIN DISORDER [None]
  - URTICARIA [None]
  - VISION BLURRED [None]
